FAERS Safety Report 8104440-9 (Version None)
Quarter: 2012Q1

REPORT INFORMATION
  Report Type: 
  Country: None (occurrence: None)
  Receive Date: 20120130
  Receipt Date: 20120119
  Transmission Date: 20120608
  Serious: Yes (Hospitalization)
  Sender: FDA-Public Use
  Company Number: JP-MERCK-1201USA02973

PATIENT
  Age: 72 Year
  Sex: Female

DRUGS (7)
  1. VOGLIBOSE [Concomitant]
     Route: 048
  2. PRORENAL [Concomitant]
     Route: 048
  3. JANUVIA [Suspect]
     Indication: DIABETES MELLITUS INADEQUATE CONTROL
     Route: 048
     Dates: start: 20110801
  4. KINEDAK [Concomitant]
     Route: 048
  5. AMARYL [Concomitant]
     Route: 048
  6. GASMOTIN [Concomitant]
     Route: 048
  7. HALCION [Concomitant]
     Route: 048

REACTIONS (1)
  - LIVER DISORDER [None]
